FAERS Safety Report 7425514-1 (Version None)
Quarter: 2011Q2

REPORT INFORMATION
  Report Type: 
  Country: None (occurrence: None)
  Receive Date: 20110420
  Receipt Date: 20110415
  Transmission Date: 20111010
  Serious: Yes (Other)
  Sender: FDA-Public Use
  Company Number: DE-PFIZER INC-2011082918

PATIENT
  Age: 72 Year
  Sex: Female

DRUGS (1)
  1. LYRICA [Suspect]
     Indication: GENERALISED ANXIETY DISORDER
     Dosage: 25 MG, 1X/DAY
     Dates: start: 20110309, end: 20110405

REACTIONS (6)
  - RASH MACULAR [None]
  - FALL [None]
  - CARDIAC DISORDER [None]
  - HYPERHIDROSIS [None]
  - SOMNOLENCE [None]
  - ANGINA PECTORIS [None]
